FAERS Safety Report 25147427 (Version 6)
Quarter: 2025Q2

REPORT INFORMATION
  Report Type: Report from Study
  Country: KR (occurrence: KR)
  Receive Date: 20250401
  Receipt Date: 20250608
  Transmission Date: 20250717
  Serious: Yes (Hospitalization, Other)
  Sender: ABBVIE
  Company Number: KR-ABBVIE-6185094

PATIENT
  Age: 78 Year
  Sex: Female
  Weight: 65 kg

DRUGS (23)
  1. VENCLEXTA [Suspect]
     Active Substance: VENETOCLAX
     Indication: Acute myeloid leukaemia
     Route: 048
     Dates: start: 20250303, end: 20250303
  2. VENCLEXTA [Suspect]
     Active Substance: VENETOCLAX
     Indication: Acute myeloid leukaemia
     Route: 048
     Dates: start: 20250304, end: 20250304
  3. VENCLEXTA [Suspect]
     Active Substance: VENETOCLAX
     Indication: Acute myeloid leukaemia
     Route: 048
     Dates: start: 20250305, end: 20250314
  4. VENCLEXTA [Suspect]
     Active Substance: VENETOCLAX
     Indication: Acute myeloid leukaemia
     Route: 048
     Dates: start: 20250420
  5. Youmkaru [Concomitant]
     Indication: Decreased appetite
     Route: 042
     Dates: start: 20250317, end: 20250322
  6. Winuf a plus [Concomitant]
     Indication: Decreased appetite
     Dosage: PERI INJ 1089ML
     Route: 042
     Dates: start: 20250314, end: 20250315
  7. Choliatin [Concomitant]
     Indication: Prophylaxis
     Route: 048
  8. Clopidogrel daewon [Concomitant]
     Indication: Thrombosis prophylaxis
     Route: 048
  9. CALCIUM CHLORIDE [Concomitant]
     Active Substance: CALCIUM CHLORIDE
     Indication: Decreased appetite
     Route: 042
     Dates: start: 20250326
  10. K contin continus [Concomitant]
     Indication: Decreased appetite
     Route: 048
     Dates: start: 20250324, end: 20250328
  11. LEVOTHYROXINE SODIUM [Concomitant]
     Active Substance: LEVOTHYROXINE SODIUM
     Indication: Prophylaxis
     Dosage: 100 G
     Route: 048
  12. NEXIUM [Concomitant]
     Active Substance: ESOMEPRAZOLE MAGNESIUM
     Indication: Abdominal pain
     Route: 048
     Dates: start: 20250315, end: 20250331
  13. Magmil s [Concomitant]
     Indication: Constipation prophylaxis
     Route: 048
     Dates: start: 20250317, end: 20250317
  14. DACOGEN [Concomitant]
     Active Substance: DECITABINE
     Indication: Acute myeloid leukaemia
     Route: 042
     Dates: start: 20250303
  15. Almagel-f [Concomitant]
     Indication: Prophylaxis
     Route: 048
     Dates: start: 20250418
  16. Doublelow [Concomitant]
     Indication: Hypertension
     Route: 048
  17. Alzygen [Concomitant]
     Indication: Abdominal pain
     Route: 048
     Dates: start: 20250316
  18. Megace F [Concomitant]
     Indication: Prophylaxis
     Route: 048
     Dates: start: 20250331, end: 20250402
  19. BENZYDAMINE HYDROCHLORIDE [Concomitant]
     Active Substance: BENZYDAMINE HYDROCHLORIDE
     Indication: Stomatitis
     Dates: start: 20250316, end: 20250331
  20. MOSAPRIDE CITRATE [Concomitant]
     Active Substance: MOSAPRIDE CITRATE
     Indication: Prophylaxis
     Route: 048
     Dates: start: 20250324
  21. Nexpharm calcium carbonate [Concomitant]
     Indication: Mineral supplementation
     Dates: start: 20250331, end: 20250402
  22. Hysone [Concomitant]
     Indication: Acute myeloid leukaemia
     Route: 048
     Dates: start: 20250407, end: 20250421
  23. Pharma calcium carbonate [Concomitant]
     Indication: Thyroid cancer
     Route: 048
     Dates: start: 20250322, end: 20250331

REACTIONS (4)
  - Erythema [Recovered/Resolved]
  - Urinary tract infection [Recovered/Resolved]
  - Septic shock [Recovered/Resolved]
  - Pyrexia [Recovered/Resolved]

NARRATIVE: CASE EVENT DATE: 20250314
